FAERS Safety Report 19920852 (Version 1)
Quarter: 2021Q4

REPORT INFORMATION
  Report Type: Spontaneous
  Country: FR (occurrence: FR)
  Receive Date: 20211006
  Receipt Date: 20211006
  Transmission Date: 20220304
  Serious: Yes (Hospitalization, Other)
  Sender: FDA-Public Use
  Company Number: None

PATIENT
  Age: 44 Year
  Sex: Male
  Weight: 74 kg

DRUGS (2)
  1. BUSULFAN [Suspect]
     Active Substance: BUSULFAN
     Indication: Non-Hodgkin^s lymphoma
     Route: 041
     Dates: start: 20210812, end: 20210814
  2. THIOTEPA [Suspect]
     Active Substance: THIOTEPA
     Indication: Non-Hodgkin^s lymphoma
     Route: 041
     Dates: start: 20210809, end: 20210811

REACTIONS (2)
  - Mucocutaneous rash [Recovered/Resolved]
  - Venoocclusive liver disease [Unknown]

NARRATIVE: CASE EVENT DATE: 20210727
